FAERS Safety Report 4844503-4 (Version None)
Quarter: 2005Q4

REPORT INFORMATION
  Report Type: 
  Country: None (occurrence: None)
  Receive Date: 20051203
  Receipt Date: 20051123
  Transmission Date: 20060501
  Serious: Yes (Hospitalization)
  Sender: FDA-Public Use
  Company Number: PHBS2005CA17300

PATIENT
  Age: 16 Year
  Sex: Male

DRUGS (4)
  1. CLOZAPINE [Suspect]
     Indication: SCHIZOPHRENIA
     Dosage: 12.5 MG, ONCE/SINGLE
     Route: 048
  2. OXCARBAZEPINE [Concomitant]
     Dosage: 300MG AM + 150MG PM
  3. OXCARBAZEPINE [Concomitant]
     Dosage: 150MG
  4. OLANZAPINE [Suspect]
     Dosage: 5 MG, ONCE/SINGLE
     Route: 030

REACTIONS (16)
  - APATHY [None]
  - AUTONOMIC NERVOUS SYSTEM IMBALANCE [None]
  - BLOOD CREATINE PHOSPHOKINASE INCREASED [None]
  - BLOOD PRESSURE INCREASED [None]
  - COGWHEEL RIGIDITY [None]
  - CONFUSIONAL STATE [None]
  - DEPRESSED LEVEL OF CONSCIOUSNESS [None]
  - DYSTONIA [None]
  - FLUSHING [None]
  - HEART RATE INCREASED [None]
  - HYPERTENSION [None]
  - MUSCLE RIGIDITY [None]
  - NEUROLEPTIC MALIGNANT SYNDROME [None]
  - PYREXIA [None]
  - RESPIRATORY RATE DECREASED [None]
  - SOMNOLENCE [None]
